FAERS Safety Report 15833227 (Version 1)
Quarter: 2019Q1

REPORT INFORMATION
  Report Type: Spontaneous
  Country: IL (occurrence: IL)
  Receive Date: 20190116
  Receipt Date: 20190116
  Transmission Date: 20190417
  Serious: Yes (Other)
  Sender: FDA-Public Use
  Company Number: IL-AMGEN-ISRSP2018140972

PATIENT
  Age: 55 Year
  Sex: Female

DRUGS (1)
  1. ENBREL [Suspect]
     Active Substance: ETANERCEPT
     Indication: RHEUMATOID ARTHRITIS
     Dosage: 50 MG, QWK
     Route: 058

REACTIONS (6)
  - Injection site haemorrhage [Unknown]
  - Back pain [Recovered/Resolved with Sequelae]
  - Respiratory tract infection [Unknown]
  - Paraesthesia [Unknown]
  - Nasopharyngitis [Recovered/Resolved]
  - Eye infection [Unknown]
